FAERS Safety Report 21817259 (Version 1)
Quarter: 2023Q1

REPORT INFORMATION
  Report Type: Spontaneous
  Country: US (occurrence: US)
  Receive Date: 20230104
  Receipt Date: 20230104
  Transmission Date: 20230417
  Serious: Yes (Other)
  Sender: FDA-Public Use
  Company Number: US-OTSUKA-2022_056522

PATIENT
  Sex: Female
  Weight: 54.43 kg

DRUGS (5)
  1. REXULTI [Suspect]
     Active Substance: BREXPIPRAZOLE
     Indication: Bipolar disorder
     Dosage: 3 MG, QD (AT BEDTIME ABOUT 9:30)
     Route: 065
     Dates: start: 2022, end: 2022
  2. REXULTI [Suspect]
     Active Substance: BREXPIPRAZOLE
     Dosage: 0.5 MG, QD (AT BEDTIME IN THE NIGHT)
     Route: 065
     Dates: start: 202208, end: 2022
  3. REXULTI [Suspect]
     Active Substance: BREXPIPRAZOLE
     Dosage: 2 MG, QD (AT NIGHT)
     Route: 065
     Dates: start: 2022, end: 2022
  4. PROLIA [Concomitant]
     Active Substance: DENOSUMAB
     Indication: Osteoporosis
     Dosage: UNK
     Route: 065
     Dates: start: 2020
  5. VRAYLAR [Concomitant]
     Active Substance: CARIPRAZINE
     Indication: Bipolar disorder
     Dosage: UNK
     Route: 065
     Dates: start: 2022, end: 2022

REACTIONS (7)
  - Metabolic disorder [Not Recovered/Not Resolved]
  - Vertigo [Not Recovered/Not Resolved]
  - Balance disorder [Recovering/Resolving]
  - Feeling abnormal [Recovering/Resolving]
  - Tremor [Recovered/Resolved]
  - Asthenia [Not Recovered/Not Resolved]
  - Product use in unapproved indication [Unknown]

NARRATIVE: CASE EVENT DATE: 20220101
